FAERS Safety Report 6267009-7 (Version None)
Quarter: 2009Q3

REPORT INFORMATION
  Report Type: 
  Country: None (occurrence: None)
  Receive Date: 20090710
  Receipt Date: 20090710
  Transmission Date: 20100115
  Serious: Yes (Death, Hospitalization)
  Sender: FDA-Public Use
  Company Number: None

PATIENT
  Sex: Male
  Weight: 133 kg

DRUGS (3)
  1. CYTARABINE [Suspect]
     Dosage: 3120 MG
     Dates: end: 20090416
  2. DAUNORUBICIN HCL [Suspect]
     Dosage: 1150 MG
     Dates: end: 20090313
  3. ETOPOSIDE [Suspect]
     Dosage: 1120 MG
     Dates: end: 20090313

REACTIONS (12)
  - BACTERIA BLOOD IDENTIFIED [None]
  - BONE MARROW FAILURE [None]
  - CEREBRAL INFARCTION [None]
  - CEREBRAL THROMBOSIS [None]
  - ENTEROCOCCAL INFECTION [None]
  - LUNG NEOPLASM [None]
  - PNEUMONIA ADENOVIRAL [None]
  - SINUS DISORDER [None]
  - STAPHYLOCOCCAL INFECTION [None]
  - STREPTOCOCCAL INFECTION [None]
  - SUBARACHNOID HAEMORRHAGE [None]
  - TREATMENT FAILURE [None]
